FAERS Safety Report 7725695-6 (Version None)
Quarter: 2011Q3

REPORT INFORMATION
  Report Type: 
  Country: None (occurrence: None)
  Receive Date: 20110902
  Receipt Date: 20110829
  Transmission Date: 20111222
  Serious: Yes (Death, Other)
  Sender: FDA-Public Use
  Company Number: PHHY2011BR77063

PATIENT
  Age: 83 Year
  Sex: Male

DRUGS (3)
  1. SEROQUEL [Concomitant]
     Dosage: 25 MG, UNK
  2. EXELON [Suspect]
     Dosage: 2 DF, QD
     Route: 062
  3. SEROQUEL XR [Concomitant]
     Dosage: UNK UKN, UNK

REACTIONS (4)
  - LEUKAEMIA [None]
  - WRONG TECHNIQUE IN DRUG USAGE PROCESS [None]
  - ASTHENIA [None]
  - DEMENTIA ALZHEIMER'S TYPE [None]
